FAERS Safety Report 8558679 (Version 4)
Quarter: 2017Q2

REPORT INFORMATION
  Report Type: Report from Study
  Country: JP (occurrence: JP)
  Receive Date: 20120511
  Receipt Date: 20170414
  Transmission Date: 20170830
  Serious: Yes (Life-Threatening, Hospitalization)
  Sender: FDA-Public Use
  Company Number: JP-ROCHE-1064587

PATIENT
  Age: 70 Year
  Sex: Female
  Weight: 56 kg

DRUGS (36)
  1. RITUXAN [Suspect]
     Active Substance: RITUXIMAB
     Indication: NODAL MARGINAL ZONE B-CELL LYMPHOMA
     Dosage: STRENGTH: 10 MG/ML?THREE COURSES OF RITUXIMAB THERAPY
     Route: 041
     Dates: start: 20070111, end: 20070125
  2. ZEVALIN [Suspect]
     Active Substance: IBRITUMOMAB TIUXETAN
     Indication: NODAL MARGINAL ZONE B-CELL LYMPHOMA
     Route: 042
     Dates: start: 20090408, end: 20090408
  3. ONCOVIN [Suspect]
     Active Substance: VINCRISTINE SULFATE
     Dosage: ONE COURSE OF CHOP THERAPY
     Route: 065
     Dates: start: 20080520, end: 20080524
  4. PREDONINE [Suspect]
     Active Substance: PREDNISOLONE
     Dosage: ONE COURSE OF CHOP THERAPY
     Route: 065
     Dates: start: 20080520, end: 20080524
  5. DIFLUCAN [Concomitant]
     Active Substance: FLUCONAZOLE
     Route: 048
     Dates: start: 20080519
  6. ALLEGRA [Concomitant]
     Active Substance: FEXOFENADINE HYDROCHLORIDE
     Route: 048
     Dates: start: 20090415, end: 20090415
  7. ENDOXAN [Suspect]
     Active Substance: CYCLOPHOSPHAMIDE
     Dosage: ONE COURSE OF CHOP THERAPY
     Route: 065
     Dates: start: 20080520, end: 20080524
  8. ADRIACIN [Suspect]
     Active Substance: DOXORUBICIN HYDROCHLORIDE
     Dosage: ONE COURSE OF CHOP THERAPY
     Route: 065
     Dates: start: 20080520, end: 20080524
  9. ONCOVIN [Suspect]
     Active Substance: VINCRISTINE SULFATE
     Indication: NODAL MARGINAL ZONE B-CELL LYMPHOMA
     Route: 065
  10. METHYCOBAL [Concomitant]
     Active Substance: METHYLCOBALAMIN
     Indication: NEUROPATHY PERIPHERAL
     Route: 048
     Dates: start: 20080609
  11. ALLEGRA [Concomitant]
     Active Substance: FEXOFENADINE HYDROCHLORIDE
     Route: 048
     Dates: start: 20090408, end: 20090408
  12. GRAN [Concomitant]
     Active Substance: FILGRASTIM
     Dosage: DATE OF DOSE: 05/JUN/2009, 09/JUN/2009, 11/JUN/2009, 13/JUN/2009, 16/JUN/2009, 23/JUN/2009, 30/JUN/2
     Route: 058
     Dates: start: 20090603, end: 20090603
  13. GRAN [Concomitant]
     Active Substance: FILGRASTIM
     Indication: NEUTROPENIA
     Route: 058
     Dates: start: 20090519, end: 20090519
  14. RITUXAN [Suspect]
     Active Substance: RITUXIMAB
     Dosage: EIGHT COURSES OF RITUXIMAB THERAPY
     Route: 041
     Dates: start: 20080711, end: 20081202
  15. RITUXAN [Suspect]
     Active Substance: RITUXIMAB
     Route: 041
     Dates: start: 20090408, end: 20090408
  16. TAKEPRON [Concomitant]
     Active Substance: LANSOPRAZOLE
     Indication: GASTROOESOPHAGEAL REFLUX DISEASE
     Route: 048
     Dates: start: 20080619
  17. CALONAL [Concomitant]
     Active Substance: ACETAMINOPHEN
     Route: 048
     Dates: start: 20090408, end: 20090408
  18. CALONAL [Concomitant]
     Active Substance: ACETAMINOPHEN
     Route: 048
     Dates: start: 20090415, end: 20090415
  19. MYSER (JAPAN) [Concomitant]
     Indication: PRURITUS
     Route: 061
     Dates: start: 20090630
  20. RITUXAN [Suspect]
     Active Substance: RITUXIMAB
     Route: 041
     Dates: start: 20090415, end: 20090415
  21. PREDONINE [Suspect]
     Active Substance: PREDNISOLONE
     Indication: NODAL MARGINAL ZONE B-CELL LYMPHOMA
     Route: 065
  22. MITOXANTRONE [Suspect]
     Active Substance: MITOXANTRONE HYDROCHLORIDE
     Indication: NODAL MARGINAL ZONE B-CELL LYMPHOMA
     Route: 065
  23. MITOXANTRONE [Suspect]
     Active Substance: MITOXANTRONE HYDROCHLORIDE
     Dosage: 03 COURSES
     Route: 065
     Dates: start: 20080617, end: 20080821
  24. PROPADERM [Concomitant]
     Active Substance: BECLOMETHASONE DIPROPIONATE
     Indication: PRURITUS
     Route: 061
     Dates: start: 20090708
  25. ZEVALIN [Suspect]
     Active Substance: IBRITUMOMAB TIUXETAN
     Indication: NODAL MARGINAL ZONE B-CELL LYMPHOMA
     Dosage: 14.8 MBQ/KG/1DAY
     Route: 042
     Dates: start: 20090415, end: 20090415
  26. BAKTAR [Concomitant]
     Active Substance: SULFAMETHOXAZOLE\TRIMETHOPRIM
     Route: 048
     Dates: start: 20080519
  27. CRAVIT [Concomitant]
     Active Substance: LEVOFLOXACIN
     Indication: CYSTITIS
     Route: 048
     Dates: start: 20090512, end: 20090527
  28. ENDOXAN [Suspect]
     Active Substance: CYCLOPHOSPHAMIDE
     Indication: NODAL MARGINAL ZONE B-CELL LYMPHOMA
     Route: 065
  29. CLADRIBINE. [Suspect]
     Active Substance: CLADRIBINE
     Indication: NODAL MARGINAL ZONE B-CELL LYMPHOMA
     Route: 065
  30. GRAN [Concomitant]
     Active Substance: FILGRASTIM
     Route: 058
     Dates: start: 20090601, end: 20090601
  31. DEXALTIN [Concomitant]
     Active Substance: DEXAMETHASONE
     Route: 048
     Dates: start: 20090527
  32. ADRIACIN [Suspect]
     Active Substance: DOXORUBICIN HYDROCHLORIDE
     Indication: NODAL MARGINAL ZONE B-CELL LYMPHOMA
     Route: 065
  33. CLADRIBINE. [Suspect]
     Active Substance: CLADRIBINE
     Dosage: 03 COURSES
     Route: 065
     Dates: start: 20080617, end: 20080821
  34. GRAN [Concomitant]
     Active Substance: FILGRASTIM
     Route: 058
     Dates: start: 20090522, end: 20090523
  35. GRAN [Concomitant]
     Active Substance: FILGRASTIM
     Route: 058
     Dates: start: 20090525, end: 20090530
  36. RESTAMIN [Concomitant]
     Active Substance: DIPHENHYDRAMINE
     Indication: PRURITUS
     Route: 061
     Dates: start: 20090630

REACTIONS (5)
  - Large intestine polyp [Recovered/Resolved]
  - Pneumonia bacterial [Recovering/Resolving]
  - Lung neoplasm malignant [Recovering/Resolving]
  - Myelodysplastic syndrome [Not Recovered/Not Resolved]
  - B-cell lymphoma recurrent [Not Recovered/Not Resolved]

NARRATIVE: CASE EVENT DATE: 20091027
